FAERS Safety Report 8236424-4 (Version None)
Quarter: 2012Q1

REPORT INFORMATION
  Report Type: 
  Country: None (occurrence: None)
  Receive Date: 20120327
  Receipt Date: 20120322
  Transmission Date: 20120608
  Serious: Yes (Other)
  Sender: FDA-Public Use
  Company Number: US-PFIZER INC-2012074881

PATIENT
  Sex: Female

DRUGS (3)
  1. NORVASC [Suspect]
     Dosage: UNK
  2. ATENOLOL [Suspect]
     Dosage: 12.5 MG, UNK
  3. ATENOLOL [Suspect]
     Dosage: 50 MG, UNK

REACTIONS (2)
  - CARDIAC FIBRILLATION [None]
  - HEART RATE DECREASED [None]
